FAERS Safety Report 18214659 (Version 1)
Quarter: 2020Q3

REPORT INFORMATION
  Report Type: Spontaneous
  Country: CN (occurrence: CN)
  Receive Date: 20200831
  Receipt Date: 20200831
  Transmission Date: 20201103
  Serious: Yes (Life-Threatening)
  Sender: FDA-Public Use
  Company Number: CN-ASTRAZENECA-2020SF09763

PATIENT
  Age: 1174 Week
  Sex: Female
  Weight: 50 kg

DRUGS (2)
  1. BRICANYL [Suspect]
     Active Substance: TERBUTALINE SULFATE
     Indication: CHEST DISCOMFORT
     Route: 055
     Dates: start: 20200816, end: 20200816
  2. PULMICORT RESPULES [Suspect]
     Active Substance: BUDESONIDE
     Indication: CHEST DISCOMFORT
     Route: 055
     Dates: start: 20200816, end: 20200816

REACTIONS (6)
  - Hypoaesthesia [Unknown]
  - Blood pressure decreased [Unknown]
  - Dyspnoea [Unknown]
  - Heart rate increased [Unknown]
  - Anaphylactoid reaction [Unknown]
  - Tremor [Unknown]

NARRATIVE: CASE EVENT DATE: 20200816
